FAERS Safety Report 6215565-7 (Version None)
Quarter: 2009Q2

REPORT INFORMATION
  Report Type: 
  Country: None (occurrence: None)
  Receive Date: 20090605
  Receipt Date: 20090529
  Transmission Date: 20091009
  Serious: Yes (Death, Life-Threatening, Hospitalization)
  Sender: FDA-Public Use
  Company Number: FR-BRISTOL-MYERS SQUIBB COMPANY-14648059

PATIENT
  Age: 71 Year
  Sex: Female

DRUGS (14)
  1. GLUCOPHAGE [Suspect]
     Route: 048
  2. MEDIATOR [Suspect]
     Indication: TYPE 2 DIABETES MELLITUS
     Dosage: TAKEN AS TABS
     Route: 048
     Dates: start: 19920101, end: 20070101
  3. LAROXYL [Suspect]
     Dosage: TABS
     Route: 048
  4. DIAMICRON [Suspect]
     Dosage: TABS
     Route: 048
  5. LASIX [Suspect]
     Dosage: TABS
     Route: 048
  6. KARDEGIC [Suspect]
     Dosage: TABS
     Route: 048
  7. DUPHALAC [Suspect]
     Dosage: TABS
     Route: 048
  8. ALLOPURINOL [Suspect]
     Dosage: TABS
     Route: 048
  9. BEFIZAL [Suspect]
     Dosage: TABS
     Route: 048
  10. NEXIUM [Suspect]
     Dosage: TABS
     Route: 048
  11. GARDENAL [Suspect]
     Dosage: TABS
     Route: 048
  12. NOZINAN [Suspect]
     Dosage: TABS
     Route: 048
  13. IMOVANE [Suspect]
     Dosage: TABS
     Route: 048
  14. TEMESTA [Suspect]
     Dosage: TABS
     Route: 048

REACTIONS (1)
  - PULMONARY ARTERIAL HYPERTENSION [None]
